FAERS Safety Report 5173151-4 (Version None)
Quarter: 2006Q4

REPORT INFORMATION
  Report Type: 
  Country: None (occurrence: None)
  Receive Date: 20061207
  Receipt Date: 20061207
  Transmission Date: 20070319
  Serious: Yes (Hospitalization)
  Sender: FDA-Public Use
  Company Number: None

PATIENT
  Age: 52 Year
  Sex: Female
  Weight: 66.9 kg

DRUGS (2)
  1. DURAGESIC-100 [Suspect]
     Indication: NECK PAIN
     Dosage: 1 PATCH Q 72 HOURS TRANSDERMAL
     Route: 062
     Dates: start: 20060713, end: 20060714
  2. LORTAB [Suspect]
     Indication: NECK PAIN
     Dosage: PO
     Route: 048

REACTIONS (7)
  - BLOOD THYROID STIMULATING HORMONE INCREASED [None]
  - CHEST PAIN [None]
  - DYSPNOEA [None]
  - HEPATIC ENZYME INCREASED [None]
  - HYPERTENSION [None]
  - LOSS OF CONSCIOUSNESS [None]
  - RESPIRATORY DISORDER [None]
